FAERS Safety Report 18690134 (Version 1)
Quarter: 2020Q4

REPORT INFORMATION
  Report Type: Spontaneous
  Country: IT (occurrence: IT)
  Receive Date: 20201231
  Receipt Date: 20201231
  Transmission Date: 20210114
  Serious: Yes (Hospitalization)
  Sender: FDA-Public Use
  Company Number: IT-TEVA-2020-IT-1863854

PATIENT
  Age: 3 Year
  Sex: Male
  Weight: 15 kg

DRUGS (12)
  1. BACTRIM [Concomitant]
     Active Substance: SULFAMETHOXAZOLE\TRIMETHOPRIM
  2. CARBOPLATIN. [Suspect]
     Active Substance: CARBOPLATIN
     Indication: NEUROBLASTOMA
     Dosage: UNIT DOSE : 472 MG
     Route: 042
     Dates: start: 20200925, end: 20200925
  3. NORMASE [Concomitant]
  4. ANTRA [Concomitant]
     Active Substance: OMEPRAZOLE
  5. VEPESID [Suspect]
     Active Substance: ETOPOSIDE
     Indication: NEUROBLASTOMA
     Dosage: UNIT DOSE : 110 MG
     Route: 042
     Dates: start: 20200925, end: 20200925
  6. CLEXANE [Concomitant]
     Active Substance: ENOXAPARIN SODIUM
  7. DECADRON [Concomitant]
     Active Substance: DEXAMETHASONE
  8. VINCRISTINE [Suspect]
     Active Substance: VINCRISTINE
     Indication: NEUROBLASTOMA
     Dosage: UNIT DOSE  : 0.9 MG
     Route: 042
     Dates: start: 20200925, end: 20200926
  9. TRIMETON [Concomitant]
     Active Substance: CHLORPHENIRAMINE MALEATE
  10. PERFALGAN [Concomitant]
     Active Substance: ACETAMINOPHEN
  11. FASTURTEC [Concomitant]
     Active Substance: RASBURICASE
  12. ZOFRAN [Concomitant]
     Active Substance: ONDANSETRON HYDROCHLORIDE

REACTIONS (1)
  - Aplastic anaemia [Recovering/Resolving]

NARRATIVE: CASE EVENT DATE: 20201004
